FAERS Safety Report 14281321 (Version 1)
Quarter: 2017Q4

REPORT INFORMATION
  Report Type: Spontaneous
  Country: US (occurrence: None)
  Receive Date: 20171213
  Receipt Date: 20171213
  Transmission Date: 20180321
  Serious: Yes (Life-Threatening, Hospitalization, Other)
  Sender: FDA-Public Use
  Company Number: None

PATIENT
  Age: 23 Year
  Sex: Male
  Weight: 83.92 kg

DRUGS (7)
  1. ATIVAN [Suspect]
     Active Substance: LORAZEPAM
     Indication: BIPOLAR DISORDER
     Dates: start: 20170708, end: 20170719
  2. HALDOL [Suspect]
     Active Substance: HALOPERIDOL
  3. RISPERIDONE. [Suspect]
     Active Substance: RISPERIDONE
  4. LORAZEPAM. [Suspect]
     Active Substance: LORAZEPAM
  5. HALOPERIDOL. [Suspect]
     Active Substance: HALOPERIDOL
  6. MULTI-VITAMIN [Concomitant]
     Active Substance: .ALPHA.-TOCOPHEROL ACETATE, DL-\ASCORBIC ACID\CYANOCOBALAMIN\FLUORIDE ION\FOLIC ACID\NIACIN\PYRIDOXINE\RIBOFLAVIN\THIAMINE\VITAMIN A\VITAMIN D
  7. ATIVAN [Suspect]
     Active Substance: LORAZEPAM
     Indication: SCHIZOPHRENIA
     Dates: start: 20170708, end: 20170719

REACTIONS (4)
  - Schizophrenia [None]
  - Heart rate irregular [None]
  - Abdominal pain upper [None]
  - Homicidal ideation [None]

NARRATIVE: CASE EVENT DATE: 20170708
